FAERS Safety Report 19849320 (Version 1)
Quarter: 2021Q3

REPORT INFORMATION
  Report Type: Spontaneous
  Country: US (occurrence: US)
  Receive Date: 20210917
  Receipt Date: 20210917
  Transmission Date: 20211014
  Serious: No
  Sender: FDA-Public Use
  Company Number: US-SUNOVION-2021SUN003398

PATIENT
  Sex: Female

DRUGS (3)
  1. LATUDA [Suspect]
     Active Substance: LURASIDONE HYDROCHLORIDE
     Dosage: 80 MG
     Route: 048
  2. AMBIEN [Concomitant]
     Active Substance: ZOLPIDEM TARTRATE
  3. GUAIFENESIN. [Concomitant]
     Active Substance: GUAIFENESIN

REACTIONS (2)
  - Wrong technique in product usage process [Unknown]
  - Somnolence [Recovered/Resolved]
